FAERS Safety Report 18207023 (Version 1)
Quarter: 2020Q3

REPORT INFORMATION
  Report Type: Spontaneous
  Country: JP (occurrence: JP)
  Receive Date: 20200828
  Receipt Date: 20200828
  Transmission Date: 20201103
  Serious: Yes (Other)
  Sender: FDA-Public Use
  Company Number: NVSJ2020JP008229

PATIENT
  Age: 76 Year
  Sex: Female

DRUGS (2)
  1. AZOPT [Suspect]
     Active Substance: BRINZOLAMIDE
     Indication: GLAUCOMA
     Dosage: UNK UNK, BID
     Route: 047
  2. MUCOSTA [Suspect]
     Active Substance: REBAMIPIDE
     Indication: DRY EYE
     Dosage: UNK UNK, QID
     Route: 047
     Dates: start: 201702

REACTIONS (2)
  - Eye discharge [Unknown]
  - Dacryocystitis [Unknown]

NARRATIVE: CASE EVENT DATE: 202006
